FAERS Safety Report 4845295-5 (Version None)
Quarter: 2005Q4

REPORT INFORMATION
  Report Type: 
  Country: None (occurrence: None)
  Receive Date: 20051205
  Receipt Date: 20051128
  Transmission Date: 20060501
  Serious: Yes (Other)
  Sender: FDA-Public Use
  Company Number: CA-GLAXOSMITHKLINE-A0583897A

PATIENT
  Age: 59 Year
  Sex: Male

DRUGS (1)
  1. BACTROBAN [Suspect]
     Indication: INFECTION PROPHYLAXIS
     Route: 050
     Dates: start: 20050501, end: 20050501

REACTIONS (3)
  - BLINDNESS UNILATERAL [None]
  - MONOPLEGIA [None]
  - MUSCULOSKELETAL DISORDER [None]
